FAERS Safety Report 22241452 (Version 1)
Quarter: 2023Q2

REPORT INFORMATION
  Report Type: Spontaneous
  Country: IT (occurrence: IT)
  Receive Date: 20230421
  Receipt Date: 20230421
  Transmission Date: 20230722
  Serious: Yes (Other)
  Sender: FDA-Public Use
  Company Number: None

PATIENT
  Sex: Male

DRUGS (3)
  1. TAFINLAR [Suspect]
     Active Substance: DABRAFENIB MESYLATE
     Indication: Malignant melanoma
     Dosage: 150 MG (TAFINLAR CPS 75 MG X2/DIE)
     Route: 048
  2. MEKINIST [Suspect]
     Active Substance: TRAMETINIB DIMETHYL SULFOXIDE
     Indication: Malignant melanoma
     Dosage: 2 MG (MEKINIST 30 CP 2 MG)
     Route: 048
  3. APREMILAST [Concomitant]
     Active Substance: APREMILAST
     Indication: Behcet^s syndrome
     Dosage: 60 MG
     Route: 048

REACTIONS (2)
  - Hyperpyrexia [Recovered/Resolved]
  - Folliculitis [Recovering/Resolving]

NARRATIVE: CASE EVENT DATE: 20230308
